FAERS Safety Report 5459398-8 (Version None)
Quarter: 2007Q3

REPORT INFORMATION
  Report Type: 
  Country: None (occurrence: None)
  Receive Date: 20070919
  Receipt Date: 20070911
  Transmission Date: 20080115
  Serious: Yes (Hospitalization)
  Sender: FDA-Public Use
  Company Number: US-ELI_LILLY_AND_COMPANY-US200709002073

PATIENT
  Age: 80 Year
  Sex: Female

DRUGS (6)
  1. FORTEO [Suspect]
     Indication: OSTEOPOROSIS
     Dosage: UNK, UNK
     Dates: start: 20070201, end: 20070301
  2. FORTEO [Suspect]
     Dosage: UNK, UNK
     Dates: start: 20070801
  3. SYNTHROID [Concomitant]
     Indication: HYPOTHYROIDISM
     Dosage: 0.05 MG, QOD
  4. SYNTHROID [Concomitant]
     Dosage: 0.075 MG, QOD
  5. PROTONIX [Concomitant]
     Indication: OESOPHAGEAL STENOSIS
     Dosage: 40 MG, DAILY (1/D)
  6. FOSAMAX [Concomitant]
     Indication: OSTEOPOROSIS

REACTIONS (5)
  - ASTHENIA [None]
  - FLATULENCE [None]
  - FREQUENT BOWEL MOVEMENTS [None]
  - INTESTINAL OBSTRUCTION [None]
  - MALAISE [None]
